FAERS Safety Report 8168628-3 (Version None)
Quarter: 2012Q1

REPORT INFORMATION
  Report Type: 
  Country: None (occurrence: None)
  Receive Date: 20120222
  Receipt Date: 20120207
  Transmission Date: 20120608
  Serious: Yes (Other)
  Sender: FDA-Public Use
  Company Number: JP-2012-10410

PATIENT
  Age: 23 Year
  Sex: Female

DRUGS (2)
  1. FRUSEMIDE (FUROSEMIDE SODIUM) [Concomitant]
  2. SAMSCA [Suspect]
     Indication: HYPONATRAEMIA
     Dosage: 15 MG MILLIGRAM(S), QD, ORAL
     Route: 048
     Dates: start: 20120127, end: 20120128

REACTIONS (5)
  - POLLAKIURIA [None]
  - FATIGUE [None]
  - HEART RATE INCREASED [None]
  - THIRST [None]
  - BLOOD SODIUM INCREASED [None]
